FAERS Safety Report 18995837 (Version 1)
Quarter: 2021Q1

REPORT INFORMATION
  Report Type: Spontaneous
  Country: US (occurrence: US)
  Receive Date: 20210311
  Receipt Date: 20210311
  Transmission Date: 20210420
  Serious: No
  Sender: FDA-Public Use
  Company Number: US-ALLERGAN-2045433US

PATIENT
  Age: 66 Year
  Sex: Female

DRUGS (4)
  1. PANTOPRAZOLE [Concomitant]
     Active Substance: PANTOPRAZOLE
     Indication: GASTROOESOPHAGEAL REFLUX DISEASE
     Dosage: UNK
     Route: 048
  2. PANTOPRAZOLE [Concomitant]
     Active Substance: PANTOPRAZOLE
     Indication: IMPAIRED GASTRIC EMPTYING
  3. VIIBRYD [Suspect]
     Active Substance: VILAZODONE HYDROCHLORIDE
     Indication: DEPRESSION
     Dosage: 10 MG, QD
     Route: 048
     Dates: start: 20201008, end: 20201009
  4. VIIBRYD [Suspect]
     Active Substance: VILAZODONE HYDROCHLORIDE
     Indication: ANXIETY
     Dosage: 5 MG, QD
     Route: 048
     Dates: start: 20201001, end: 20201008

REACTIONS (14)
  - Feeling hot [Recovered/Resolved]
  - Abnormal dreams [Recovered/Resolved]
  - Gastric disorder [Unknown]
  - Burning mouth syndrome [Recovering/Resolving]
  - Dyspepsia [Recovered/Resolved]
  - Wrong technique in product usage process [Unknown]
  - Off label use [Unknown]
  - Abdominal discomfort [Recovering/Resolving]
  - Drug ineffective [Unknown]
  - Speech disorder [Recovered/Resolved]
  - Condition aggravated [Recovering/Resolving]
  - Energy increased [Recovered/Resolved]
  - Feeling abnormal [Recovered/Resolved]
  - Libido increased [Recovered/Resolved]

NARRATIVE: CASE EVENT DATE: 202010
